FAERS Safety Report 6213920-2 (Version None)
Quarter: 2009Q2

REPORT INFORMATION
  Report Type: 
  Country: None (occurrence: None)
  Receive Date: 20090601
  Receipt Date: 20090601
  Transmission Date: 20091009
  Serious: Yes (Other)
  Sender: FDA-Public Use
  Company Number: None

PATIENT
  Age: 65 Year
  Sex: Male
  Weight: 90.7194 kg

DRUGS (1)
  1. ASTELIN [Suspect]
     Indication: SINUSITIS
     Dosage: 2 SPRAYS TWICE A DAY NASAL
     Route: 045
     Dates: start: 20090520, end: 20090527

REACTIONS (3)
  - DIZZINESS [None]
  - SWELLING FACE [None]
  - SYNCOPE [None]
